FAERS Safety Report 7436086 (Version 3)
Quarter: 2014Q1

REPORT INFORMATION
  Report Type: Spontaneous
  Country: US (occurrence: US)
  Receive Date: 20100625
  Receipt Date: 20140106
  Transmission Date: 20141002
  Serious: Yes (Other)
  Sender: FDA-Public Use
  Company Number: US-JNJFOC-20100606130

PATIENT
  Sex: Male
  Weight: 92.53 kg

DRUGS (9)
  1. DURAGESIC [Suspect]
     Indication: GUN SHOT WOUND
     Dosage: 100 MCG+ 50 MCG
     Route: 062
     Dates: start: 2002, end: 200911
  2. DURAGESIC [Suspect]
     Indication: PAIN
     Dosage: 100 MCG+ 50 MCG
     Route: 062
     Dates: start: 2002, end: 200911
  3. SANDOZ FENTANYL TRANSDERMAL SYSTEM [Suspect]
     Indication: GUN SHOT WOUND
     Dosage: 100 MCG+50 MCG
     Route: 062
     Dates: start: 200911, end: 201003
  4. SANDOZ FENTANYL TRANSDERMAL SYSTEM [Suspect]
     Indication: PAIN
     Dosage: 100 MCG+50 MCG
     Route: 062
     Dates: start: 200911, end: 201003
  5. DURAGESIC [Suspect]
     Indication: GUN SHOT WOUND
     Dosage: 100 MCG+50 MCG
     Route: 062
     Dates: start: 201003
  6. DURAGESIC [Suspect]
     Indication: PAIN
     Dosage: 100 MCG+50 MCG
     Route: 062
     Dates: start: 201003
  7. SANDOZ FENTANYL TRANSDERMAL SYSTEM [Suspect]
     Indication: GUN SHOT WOUND
     Dosage: 100 MCG+50 MCG
     Route: 062
     Dates: start: 201003
  8. SANDOZ FENTANYL TRANSDERMAL SYSTEM [Suspect]
     Indication: PAIN
     Dosage: 100 MCG+50 MCG
     Route: 062
     Dates: start: 201003
  9. OXYCODONE [Concomitant]
     Indication: BREAKTHROUGH PAIN
     Route: 065

REACTIONS (9)
  - Type 1 diabetes mellitus [Not Recovered/Not Resolved]
  - Neuropathy peripheral [Not Recovered/Not Resolved]
  - Depression [Not Recovered/Not Resolved]
  - Drug effect decreased [Not Recovered/Not Resolved]
  - Hypertension [Not Recovered/Not Resolved]
  - Pain [Not Recovered/Not Resolved]
  - Drug ineffective [Not Recovered/Not Resolved]
  - Drug dose omission [Not Recovered/Not Resolved]
  - Product quality issue [Unknown]
